FAERS Safety Report 24458367 (Version 1)
Quarter: 2024Q4

REPORT INFORMATION
  Report Type: Report from Study
  Country: CA (occurrence: CA)
  Receive Date: 20241018
  Receipt Date: 20241018
  Transmission Date: 20250115
  Serious: No
  Sender: ROCHE
  Company Number: CA-ROCHE-3525898

PATIENT
  Sex: Female

DRUGS (9)
  1. RITUXAN [Suspect]
     Active Substance: RITUXIMAB
     Indication: Granulomatosis with polyangiitis
     Dosage: LAST RITUXAN INFUSION:25/SEP/2023? FREQUENCY TEXT:DAY 1; 15
     Route: 041
     Dates: start: 20190626
  2. BENADRYL [Concomitant]
     Active Substance: DIPHENHYDRAMINE HYDROCHLORIDE
     Route: 048
     Dates: start: 20190626
  3. FOLIC ACID [Concomitant]
     Active Substance: FOLIC ACID
     Route: 048
     Dates: start: 20230925
  4. METHOTREXATE [Concomitant]
     Active Substance: METHOTREXATE
  5. MODAFINIL [Concomitant]
     Active Substance: MODAFINIL
     Dates: start: 20200901
  6. PREDNISONE [Concomitant]
     Active Substance: PREDNISONE
  7. SOLU-MEDROL [Concomitant]
     Active Substance: METHYLPREDNISOLONE SODIUM SUCCINATE
     Route: 042
     Dates: start: 20190626
  8. TYLENOL [Concomitant]
     Active Substance: ACETAMINOPHEN
     Route: 048
     Dates: start: 20190626
  9. VITAMIN B COMPLEX [Concomitant]
     Active Substance: CYANOCOBALAMIN\DEXPANTHENOL\NIACINAMIDE\PYRIDOXINE HYDROCHLORIDE\RIBOFLAVIN 5^-PHOSPHATE SODIUM\THIA

REACTIONS (2)
  - Clostridium difficile infection [Unknown]
  - Gastroenteritis [Unknown]
